FAERS Safety Report 7594444-7 (Version None)
Quarter: 2011Q3

REPORT INFORMATION
  Report Type: 
  Country: None (occurrence: None)
  Receive Date: 20110707
  Receipt Date: 20110625
  Transmission Date: 20111222
  Serious: Yes (Death, Hospitalization, Other)
  Sender: FDA-Public Use
  Company Number: US-PAR PHARMACEUTICAL, INC-2011SCPR003086

PATIENT
  Age: 43 Year
  Sex: Female
  Weight: 79.365 kg

DRUGS (7)
  1. ZOLPIDEM [Concomitant]
     Indication: PRODUCT USED FOR UNKNOWN INDICATION
     Dosage: UNK UNK, UNKNOWN
     Route: 065
  2. ALPRAZOLAM [Suspect]
     Indication: PRODUCT USED FOR UNKNOWN INDICATION
     Dosage: UNK UNK, UNKNOWN
     Route: 065
  3. ALPRAZOLAM [Suspect]
     Dosage: UNK MG, UNK
     Route: 065
  4. ZOLPIDEM [Concomitant]
     Dosage: 60 MG, UNK
  5. CITALOPRAM HYDROBROMIDE [Concomitant]
     Indication: PRODUCT USED FOR UNKNOWN INDICATION
     Dosage: 2 MG, UNKNOWN
     Route: 065
  6. CITALOPRAM HYDROBROMIDE [Concomitant]
     Dosage: UNK
  7. ZIPRASIDONE HYDROCHLORIDE [Concomitant]
     Indication: PRODUCT USED FOR UNKNOWN INDICATION
     Dosage: 20 MG, UNKNOWN
     Route: 065

REACTIONS (4)
  - DRUG WITHDRAWAL SYNDROME [None]
  - DEATH [None]
  - CARDIOMYOPATHY [None]
  - INTENTIONAL OVERDOSE [None]
